FAERS Safety Report 7297423-2 (Version None)
Quarter: 2011Q1

REPORT INFORMATION
  Report Type: 
  Country: None (occurrence: None)
  Receive Date: 20110207
  Receipt Date: 20110125
  Transmission Date: 20110831
  Serious: Yes (Death, Hospitalization)
  Sender: FDA-Public Use
  Company Number: 1000018649

PATIENT
  Age: 87 Year
  Sex: Male

DRUGS (13)
  1. FORLAX (MACROGL) [Concomitant]
  2. SOLU-MEDROL [Suspect]
     Dosage: 1 GRAM (1 GM, 1 IN 1 D), INTRAVENOUS (NOT OTHERWISE SPECIFIED)
     Route: 042
     Dates: start: 20101114, end: 20101125
  3. CASODEX [Concomitant]
  4. TRIATEC (RAMIPRIL) [Concomitant]
  5. CEFTRIAXONE SODIUM [Suspect]
     Dosage: 1 GRAM (1 GM, 1 IN 1 D), INTRAVENOUS
     Route: 042
     Dates: start: 20101112, end: 20101122
  6. INEXIUM (ESOMEPRAZOLE) (POWDER) [Suspect]
     Dosage: 40 MG (40 MG, 1 IN 1 D), INTRAVENOUS
     Route: 042
     Dates: start: 20101020, end: 20101122
  7. ARIXTRA [Suspect]
     Indication: HEPARIN-INDUCED THROMBOCYTOPENIA
     Dosage: SUBCUTANEOUS
     Route: 058
     Dates: start: 20101117, end: 20101121
  8. BISOPROLOL FUMARATE [Concomitant]
  9. ESCITALOPRAM OXALATE [Suspect]
     Dosage: 10 MG (10 MG, 1 IN 1 D), ORAL
     Route: 048
     Dates: start: 20101108, end: 20101122
  10. PLITICAN (ALIZAPRIDE HYDROCHLORIDE) (SOLUTION) [Suspect]
     Dosage: 2 DF (1 DOSAGE FORMS, 2 IN 1 D), INTRAVENOUS (NOT OTHERWISE SPECIFIED)
     Route: 042
     Dates: start: 20101108, end: 20101123
  11. ACUPAN [Suspect]
     Dosage: 3 DF (1 DOSAGE FORMS, 3 IN 1 D), INTRAVENOUS (NOT OTHERWISE SPECIFIED)
     Route: 042
     Dates: start: 20101021, end: 20101124
  12. CALCIPARINE [Suspect]
     Dosage: 10,000 IU/L 0.4 ML, SUBCUTANEOUS
     Route: 058
     Dates: start: 20101108, end: 20101117
  13. LASIX [Concomitant]

REACTIONS (3)
  - ORGAN FAILURE [None]
  - GENERAL PHYSICAL HEALTH DETERIORATION [None]
  - THROMBOCYTOPENIA [None]
